FAERS Safety Report 5694177-8 (Version None)
Quarter: 2008Q2

REPORT INFORMATION
  Report Type: 
  Country: None (occurrence: None)
  Receive Date: 20080402
  Receipt Date: 20080325
  Transmission Date: 20081010
  Serious: Yes (Hospitalization, Other)
  Sender: FDA-Public Use
  Company Number: 2008BI004023

PATIENT
  Age: 60 Year
  Sex: Male

DRUGS (1)
  1. TYSABRI [Suspect]
     Indication: MULTIPLE SCLEROSIS
     Dosage: 300 MG; QM; IV
     Route: 042
     Dates: start: 20070907, end: 20080101

REACTIONS (4)
  - ADENOCARCINOMA [None]
  - APPENDICITIS PERFORATED [None]
  - COLON CANCER [None]
  - POSTOPERATIVE ILEUS [None]
